FAERS Safety Report 6088598-1 (Version None)
Quarter: 2009Q1

REPORT INFORMATION
  Report Type: 
  Country: None (occurrence: None)
  Receive Date: 20090224
  Receipt Date: 20090211
  Transmission Date: 20090719
  Serious: No
  Sender: FDA-Public Use
  Company Number: US-PFIZER INC-2008153344

PATIENT
  Sex: Female
  Weight: 62.132 kg

DRUGS (9)
  1. CHANTIX [Suspect]
     Dosage: 0.5 MG, UNK
     Dates: start: 20081101, end: 20081101
  2. NEURONTIN [Concomitant]
     Dosage: UNK
  3. CYMBALTA [Concomitant]
     Dosage: UNK
  4. TRAZODONE HYDROCHLORIDE [Concomitant]
     Dosage: UNK
  5. NEXIUM [Concomitant]
     Dosage: UNK
  6. MONTELUKAST [Concomitant]
     Dosage: UNK
  7. QUINAPRIL [Concomitant]
     Dosage: UNK
  8. METFORMIN [Concomitant]
     Dosage: UNK
  9. ACETYLSALICYLIC ACID [Concomitant]
     Dosage: UNK

REACTIONS (1)
  - DEPRESSION [None]
